FAERS Safety Report 24295072 (Version 1)
Quarter: 2024Q3

REPORT INFORMATION
  Report Type: Spontaneous
  Country: PL (occurrence: PL)
  Receive Date: 20240907
  Receipt Date: 20240907
  Transmission Date: 20241017
  Serious: Yes (Life-Threatening, Other)
  Sender: AUROBINDO
  Company Number: PL-URPL-1-2147-2020

PATIENT
  Age: 18 Year
  Sex: Female
  Weight: 100 kg

DRUGS (1)
  1. ACETAMINOPHEN [Suspect]
     Active Substance: ACETAMINOPHEN
     Indication: Product used for unknown indication
     Dosage: 500 MILLIGRAM (14 TABL X 500 MG)
     Route: 048
     Dates: start: 20200826, end: 20200826

REACTIONS (1)
  - Abdominal pain upper [Recovering/Resolving]
